FAERS Safety Report 17800376 (Version 2)
Quarter: 2020Q2

REPORT INFORMATION
  Report Type: Spontaneous
  Country: US (occurrence: US)
  Receive Date: 20200518
  Receipt Date: 20200601
  Transmission Date: 20200714
  Serious: Yes (Other)
  Sender: FDA-Public Use
  Company Number: US-SUNOVION-2020SUN001492

PATIENT
  Age: 60 Year
  Sex: Female

DRUGS (1)
  1. LATUDA [Suspect]
     Active Substance: LURASIDONE HYDROCHLORIDE
     Dosage: 40 MG, QD
     Route: 048
     Dates: end: 2019

REACTIONS (4)
  - Hallucinations, mixed [Unknown]
  - Dermatillomania [Unknown]
  - Impatience [Unknown]
  - Therapy interrupted [Unknown]
